FAERS Safety Report 8368178-5 (Version None)
Quarter: 2012Q2

REPORT INFORMATION
  Report Type: 
  Country: None (occurrence: None)
  Receive Date: 20120517
  Receipt Date: 20120503
  Transmission Date: 20120825
  Serious: Yes (Other)
  Sender: FDA-Public Use
  Company Number: CHPA2012US010359

PATIENT
  Age: 44 Year
  Sex: Male

DRUGS (2)
  1. ALKA-SELTZER                            /USA/ [Concomitant]
     Dosage: UNK, UNK
  2. PHENYLEPHRINE HCL [Suspect]
     Indication: NASAL CONGESTION
     Dosage: 2 SPRAYS PER NOSTRIL, BID PRN
     Route: 045
     Dates: start: 20020101

REACTIONS (3)
  - EMPHYSEMA [None]
  - DISEASE RECURRENCE [None]
  - ASTHMA [None]
